FAERS Safety Report 5627103-8 (Version None)
Quarter: 2008Q1

REPORT INFORMATION
  Report Type: 
  Country: None (occurrence: None)
  Receive Date: 20080129
  Receipt Date: 20071022
  Transmission Date: 20080703
  Serious: Yes (Other)
  Sender: FDA-Public Use
  Company Number: 8027635

PATIENT
  Age: 19 Year
  Sex: Male

DRUGS (1)
  1. KEPPRA [Suspect]
     Dosage: 1000 MG /D
     Dates: start: 20071001

REACTIONS (3)
  - ANGER [None]
  - DELUSION [None]
  - SUICIDAL IDEATION [None]
